FAERS Safety Report 4355453-4 (Version None)
Quarter: 2004Q2

REPORT INFORMATION
  Report Type: 
  Country: None (occurrence: None)
  Receive Date: 20040510
  Receipt Date: 20031208
  Transmission Date: 20050107
  Serious: Yes (Disabling)
  Sender: FDA-Public Use
  Company Number: JP-MERCK-0312USA01150

PATIENT
  Age: 17 Year

DRUGS (5)
  1. [THERAPY UNSPECIFIED] [Concomitant]
     Route: 065
  2. HORIZON [Suspect]
     Route: 042
  3. DROLEPTAN [Suspect]
     Route: 065
  4. PEPCID [Suspect]
     Route: 051
  5. PRIMPERAN INJ [Suspect]
     Route: 065

REACTIONS (7)
  - APALLIC SYNDROME [None]
  - CARDIAC ARREST [None]
  - DYSPNOEA [None]
  - OBSTRUCTIVE AIRWAYS DISORDER [None]
  - PHARYNGEAL OEDEMA [None]
  - POST PROCEDURAL COMPLICATION [None]
  - RESPIRATORY FAILURE [None]
